FAERS Safety Report 4901715-9 (Version None)
Quarter: 2006Q1

REPORT INFORMATION
  Report Type: 
  Country: None (occurrence: None)
  Receive Date: 20060206
  Receipt Date: 20051228
  Transmission Date: 20060701
  Serious: No
  Sender: FDA-Public Use
  Company Number: US-BRISTOL-MYERS SQUIBB COMPANY-13230826

PATIENT
  Age: 49 Year
  Sex: Male
  Weight: 118 kg

DRUGS (12)
  1. TAXOL [Suspect]
     Route: 042
     Dates: start: 20051228, end: 20051228
  2. CARBOPLATIN [Concomitant]
     Dates: start: 20051207, end: 20051207
  3. BENADRYL [Concomitant]
     Indication: PREMEDICATION
  4. ZOFRAN [Concomitant]
     Indication: PREMEDICATION
  5. DEXAMETHASONE TAB [Concomitant]
     Indication: PREMEDICATION
  6. CIMETIDINE [Concomitant]
     Indication: PREMEDICATION
  7. HYDROCHLOROTHIAZIDE [Concomitant]
  8. VICODIN [Concomitant]
  9. TEMAZEPAM [Concomitant]
  10. PROZAC [Concomitant]
  11. COMPAZINE [Concomitant]
  12. INHALERS [Concomitant]

REACTIONS (1)
  - DRUG ADMINISTRATION ERROR [None]
